FAERS Safety Report 12640064 (Version 12)
Quarter: 2018Q1

REPORT INFORMATION
  Report Type: Report from Study
  Country: GB (occurrence: GB)
  Receive Date: 20160810
  Receipt Date: 20180305
  Transmission Date: 20180508
  Serious: Yes (Other)
  Sender: FDA-Public Use
  Company Number: GB-BRISTOL-MYERS SQUIBB COMPANY-BMS-2016-048737

PATIENT
  Sex: Female

DRUGS (3)
  1. ABATACEPT [Suspect]
     Active Substance: ABATACEPT
     Indication: RHEUMATOID ARTHRITIS
     Dosage: 125 MG, EVERY 10 DAYS
     Route: 058
     Dates: start: 20151124
  2. LANSOPRAZOLE. [Concomitant]
     Active Substance: LANSOPRAZOLE
     Indication: PRODUCT USED FOR UNKNOWN INDICATION
     Route: 065
  3. GAVISCON                           /00237601/ [Concomitant]
     Active Substance: ALUMINUM HYDROXIDE\MAGNESIUM CARBONATE
     Indication: PRODUCT USED FOR UNKNOWN INDICATION
     Route: 065

REACTIONS (25)
  - Tooth disorder [Unknown]
  - Anaemia [Unknown]
  - Abdominal pain upper [Unknown]
  - Malaise [Unknown]
  - Feeding disorder [Unknown]
  - Influenza [Unknown]
  - Fatigue [Unknown]
  - Hypertension [Unknown]
  - Drug dose omission [Unknown]
  - Mastication disorder [Unknown]
  - Musculoskeletal stiffness [Unknown]
  - Adverse event [Unknown]
  - Immunodeficiency [Unknown]
  - Epistaxis [Unknown]
  - Off label use [Unknown]
  - Lower respiratory tract infection [Unknown]
  - Ear infection [Not Recovered/Not Resolved]
  - Blood test abnormal [Unknown]
  - Functional gastrointestinal disorder [Unknown]
  - Incontinence [Unknown]
  - Gastrointestinal disorder [Unknown]
  - Brain operation [Unknown]
  - Infection [Unknown]
  - Nasopharyngitis [Unknown]
  - Gastric disorder [Unknown]
